FAERS Safety Report 8525367-4 (Version None)
Quarter: 2012Q3

REPORT INFORMATION
  Report Type: 
  Country: None (occurrence: None)
  Receive Date: 20120720
  Receipt Date: 20120712
  Transmission Date: 20120928
  Serious: Yes (Hospitalization)
  Sender: FDA-Public Use
  Company Number: DE-UCBSA-061694

PATIENT
  Age: 40 Year
  Sex: Male

DRUGS (5)
  1. LACOSAMIDE [Suspect]
     Indication: EPILEPSY
     Dosage: DAILY DOSE: 200 MG
  2. LAMOTRIGINE [Suspect]
     Indication: EPILEPSY
  3. LEVETIRACETAM [Suspect]
     Indication: EPILEPSY
  4. LAMOTRIGINE [Suspect]
     Dosage: DAILY DOSE: 300 MG
  5. LEVETIRACETAM [Suspect]
     Dosage: DAILY DOSE: 3000MG

REACTIONS (6)
  - ASTHENIA [None]
  - PARKINSONISM [None]
  - HYPOXIC-ISCHAEMIC ENCEPHALOPATHY [None]
  - STATUS EPILEPTICUS [None]
  - CARDIAC ARREST [None]
  - PNEUMONIA [None]
